FAERS Safety Report 21143555 (Version 39)
Quarter: 2025Q3

REPORT INFORMATION
  Report Type: Report from Study
  Country: US (occurrence: US)
  Receive Date: 20220728
  Receipt Date: 20250709
  Transmission Date: 20251021
  Serious: Yes (Hospitalization, Other)
  Sender: TAKEDA
  Company Number: US-TAKEDA-2022TUS042569

PATIENT
  Sex: Female
  Weight: 103 kg

DRUGS (27)
  1. LANADELUMAB [Suspect]
     Active Substance: LANADELUMAB
     Indication: Immune system disorder
     Dosage: 300 MILLIGRAM, Q2WEEKS
     Dates: start: 20220608
  2. LANADELUMAB [Suspect]
     Active Substance: LANADELUMAB
     Indication: Mast cell activation syndrome
     Dosage: 300 MILLIGRAM, Q2WEEKS
  3. LANADELUMAB [Suspect]
     Active Substance: LANADELUMAB
  4. PFIZER-BIONTECH COVID-19 VACCINE [Suspect]
     Active Substance: TOZINAMERAN
     Indication: Product used for unknown indication
  5. MARINOL [Concomitant]
     Active Substance: DRONABINOL
     Indication: Product used for unknown indication
  6. HYDROXYZINE HYDROCHLORIDE [Concomitant]
     Active Substance: HYDROXYZINE HYDROCHLORIDE
     Indication: Product used for unknown indication
  7. SPIRONOLACTONE [Concomitant]
     Active Substance: SPIRONOLACTONE
     Indication: Product used for unknown indication
  8. ROPINIROLE HYDROCHLORIDE [Concomitant]
     Active Substance: ROPINIROLE HYDROCHLORIDE
     Indication: Product used for unknown indication
  9. ZYRTEC [Concomitant]
     Active Substance: CETIRIZINE HYDROCHLORIDE
     Indication: Product used for unknown indication
  10. PRILOSEC [Concomitant]
     Active Substance: OMEPRAZOLE MAGNESIUM
     Indication: Product used for unknown indication
  11. XOLAIR [Concomitant]
     Active Substance: OMALIZUMAB
     Indication: Product used for unknown indication
  12. PREDNISONE [Concomitant]
     Active Substance: PREDNISONE
     Indication: Product used for unknown indication
  13. PROMETHAZINE HYDROCHLORIDE [Concomitant]
     Active Substance: PROMETHAZINE HYDROCHLORIDE
     Indication: Product used for unknown indication
  14. RUCONEST [Concomitant]
     Active Substance: CONESTAT ALFA
     Indication: Product used for unknown indication
  15. ICATIBANT [Concomitant]
     Active Substance: ICATIBANT ACETATE
     Indication: Product used for unknown indication
  16. BUMETANIDE [Concomitant]
     Active Substance: BUMETANIDE
     Indication: Product used for unknown indication
  17. COLACE [Concomitant]
     Active Substance: DOCUSATE SODIUM
     Indication: Product used for unknown indication
  18. LINZESS [Concomitant]
     Active Substance: LINACLOTIDE
     Indication: Product used for unknown indication
  19. EPIPEN [Concomitant]
     Active Substance: EPINEPHRINE
     Indication: Product used for unknown indication
  20. TIZANIDINE HYDROCHLORIDE [Concomitant]
     Active Substance: TIZANIDINE HYDROCHLORIDE
     Indication: Product used for unknown indication
  21. ACETAMINOPHEN AND CODEINE [Concomitant]
     Active Substance: ACETAMINOPHEN\CODEINE PHOSPHATE
     Indication: Product used for unknown indication
  22. GRANISETRON HYDROCHLORIDE [Concomitant]
     Active Substance: GRANISETRON HYDROCHLORIDE
     Indication: Product used for unknown indication
  23. LASIX [Concomitant]
     Active Substance: FUROSEMIDE
  24. METHOCARBAMOL [Concomitant]
     Active Substance: METHOCARBAMOL
  25. ONDANSETRON HYDROCHLORIDE [Concomitant]
     Active Substance: ONDANSETRON HYDROCHLORIDE
  26. AMILORIDE HCL [Concomitant]
     Active Substance: AMILORIDE HYDROCHLORIDE
  27. GASTROCROM [Concomitant]
     Active Substance: CROMOLYN SODIUM

REACTIONS (43)
  - Sepsis [Unknown]
  - Cardiac failure [Unknown]
  - Kidney infection [Unknown]
  - Nephrolithiasis [Unknown]
  - Thrombosis [Unknown]
  - Renal disorder [Unknown]
  - Pericardial effusion [Unknown]
  - Systemic lupus erythematosus [Unknown]
  - Cushing^s syndrome [Unknown]
  - Urinary tract infection [Unknown]
  - Vein rupture [Unknown]
  - Blood potassium decreased [Unknown]
  - Clostridium difficile infection [Unknown]
  - Pneumonia [Unknown]
  - Physical assault [Unknown]
  - Hereditary angioedema [Not Recovered/Not Resolved]
  - Pleural effusion [Unknown]
  - Infusion site bruising [Unknown]
  - Infusion site urticaria [Unknown]
  - Reaction to colouring [Unknown]
  - White blood cell disorder [Unknown]
  - Urticaria [Unknown]
  - Dermatitis contact [Unknown]
  - Dyspnoea [Unknown]
  - Injection site discharge [Unknown]
  - Lymphorrhoea [Unknown]
  - Mastocytosis [Unknown]
  - Poor venous access [Unknown]
  - Arthropod sting [Unknown]
  - Concussion [Unknown]
  - Eye haemorrhage [Unknown]
  - Product dose omission issue [Unknown]
  - Product use in unapproved indication [Unknown]
  - Hot flush [Unknown]
  - Skin disorder [Unknown]
  - Obstructive airways disorder [Unknown]
  - Allergy to vaccine [Unknown]
  - Haemorrhagic disorder [Unknown]
  - Vomiting [Unknown]
  - Product use issue [Unknown]
  - Infection [Unknown]
  - Injection site abscess [Unknown]
  - Rash [Unknown]
